FAERS Safety Report 4921545-1 (Version None)
Quarter: 2006Q1

REPORT INFORMATION
  Report Type: 
  Country: None (occurrence: None)
  Receive Date: 20060224
  Receipt Date: 20060216
  Transmission Date: 20060701
  Serious: Yes (Death, Hospitalization)
  Sender: FDA-Public Use
  Company Number: FR-AVENTIS-200610652FR

PATIENT
  Age: 37 Year
  Sex: Male

DRUGS (4)
  1. RIFADIN [Suspect]
     Indication: PNEUMONIA
     Route: 048
     Dates: start: 20050915, end: 20050920
  2. RIFADIN [Suspect]
     Dates: start: 20051017, end: 20051027
  3. HEPARINE SODIQUE CHOAY [Concomitant]
     Route: 042
     Dates: start: 20050817, end: 20050921
  4. VANCOMYCIN [Concomitant]
     Indication: PNEUMONIA
     Route: 042
     Dates: start: 20050910, end: 20051010

REACTIONS (2)
  - DEATH [None]
  - THROMBOCYTOPENIA [None]
